FAERS Safety Report 10901075 (Version 1)
Quarter: 2015Q1

REPORT INFORMATION
  Report Type: Spontaneous
  Country: SE (occurrence: SE)
  Receive Date: 20150310
  Receipt Date: 20150310
  Transmission Date: 20150721
  Serious: Yes (Congenital Anomaly)
  Sender: FDA-Public Use
  Company Number: SE-RANBAXY-2015R1-93658

PATIENT

DRUGS (2)
  1. FLUPENTIXOL [Suspect]
     Active Substance: FLUPENTIXOL
     Indication: PRODUCT USED FOR UNKNOWN INDICATION
     Route: 064
  2. ZOLPIDEM [Suspect]
     Active Substance: ZOLPIDEM\ZOLPIDEM TARTRATE
     Indication: PRODUCT USED FOR UNKNOWN INDICATION
     Route: 064

REACTIONS (4)
  - Foetal exposure during pregnancy [Unknown]
  - Vitello-intestinal duct remnant [Unknown]
  - Congenital cystic kidney disease [Unknown]
  - Congenital anomaly [Unknown]
